FAERS Safety Report 6841218-8 (Version None)
Quarter: 2010Q3

REPORT INFORMATION
  Report Type: 
  Country: None (occurrence: None)
  Receive Date: 20100714
  Receipt Date: 20070717
  Transmission Date: 20110219
  Serious: No
  Sender: FDA-Public Use
  Company Number: US-PFIZER INC-2007051616

PATIENT
  Age: 71 Year
  Sex: Female
  Weight: 72.1 kg

DRUGS (7)
  1. CHANTIX [Suspect]
     Indication: SMOKING CESSATION THERAPY
     Dates: start: 20070614
  2. ZOCOR [Concomitant]
  3. NEURONTIN [Concomitant]
  4. ATENOLOL [Concomitant]
  5. GEZOR [Concomitant]
  6. ACETYLSALICYLIC ACID [Concomitant]
  7. XANAX [Concomitant]

REACTIONS (5)
  - ACTIVITIES OF DAILY LIVING IMPAIRED [None]
  - EATING DISORDER [None]
  - MALAISE [None]
  - NAUSEA [None]
  - SOMNOLENCE [None]
